FAERS Safety Report 20106466 (Version 2)
Quarter: 2021Q4

REPORT INFORMATION
  Report Type: Spontaneous
  Country: US (occurrence: US)
  Receive Date: 20211124
  Receipt Date: 20211210
  Transmission Date: 20220303
  Serious: No
  Sender: FDA-Public Use
  Company Number: US-TOLMAR, INC.-21US031563

PATIENT
  Age: 32 Year
  Sex: Male

DRUGS (3)
  1. KETOCONAZOLE [Suspect]
     Active Substance: KETOCONAZOLE
     Indication: Hair growth abnormal
     Dosage: UNK UNK, QD
     Route: 003
  2. FINASTERIDE [Concomitant]
     Active Substance: FINASTERIDE
     Indication: Hair growth abnormal
  3. FOAM [Concomitant]
     Indication: Hair growth abnormal
     Route: 003

REACTIONS (2)
  - Off label use [Recovered/Resolved]
  - Rash [Recovered/Resolved]
